FAERS Safety Report 11343664 (Version 1)
Quarter: 2015Q3

REPORT INFORMATION
  Report Type: Spontaneous
  Country: US (occurrence: None)
  Receive Date: 20150804
  Receipt Date: 20150804
  Transmission Date: 20151125
  Serious: Yes (Other)
  Sender: FDA-Public Use
  Company Number: 150292

PATIENT
  Age: 50 Year
  Sex: Male
  Weight: 66.68 kg

DRUGS (1)
  1. SUPREP BOWEL PREP [Suspect]
     Active Substance: MAGNESIUM SULFATE\POTASSIUM SULFATE\SODIUM SULFATE
     Indication: COLONOSCOPY
     Route: 048
     Dates: start: 20140910, end: 20140910

REACTIONS (9)
  - Discomfort [None]
  - Tongue biting [None]
  - Loss of consciousness [None]
  - Pain [None]
  - Postictal state [None]
  - Headache [None]
  - Seizure [None]
  - Foaming at mouth [None]
  - Aura [None]

NARRATIVE: CASE EVENT DATE: 20140910
